FAERS Safety Report 8575796 (Version 4)
Quarter: 2014Q1

REPORT INFORMATION
  Report Type: Spontaneous
  Country: US (occurrence: US)
  Receive Date: 20120523
  Receipt Date: 20140214
  Transmission Date: 20141002
  Serious: Yes (Hospitalization, Other)
  Sender: FDA-Public Use
  Company Number: US-B.I. PHARMACEUTICALS,INC./RIDGEFIELD-2012-BP-11005BP

PATIENT
  Age: 64 Year
  Sex: Female
  Weight: 81.65 kg

DRUGS (28)
  1. PRADAXA [Suspect]
     Indication: ATRIAL FIBRILLATION
     Dosage: 300 MG
     Route: 048
     Dates: start: 20110512, end: 20110809
  2. PRADAXA [Suspect]
     Indication: CEREBROVASCULAR ACCIDENT PROPHYLAXIS
  3. VITAMIN C [Concomitant]
     Dosage: 500 MG
     Route: 048
  4. ZINC SULFATE [Concomitant]
  5. FOLIC ACID [Concomitant]
  6. COREG [Concomitant]
     Dosage: 50 MG
     Route: 048
     Dates: start: 2009, end: 2012
  7. COREG [Concomitant]
     Dosage: 12.5 MG
     Route: 048
  8. ZESTRIL [Concomitant]
     Dosage: 5 MG
     Route: 048
     Dates: start: 2010, end: 2012
  9. OMEGA 3 [Concomitant]
     Dosage: 1000 MG
     Route: 048
  10. PAXIL [Concomitant]
     Dosage: 10 MG
     Route: 048
  11. DESYREL [Concomitant]
     Dosage: 100 MG
     Route: 048
     Dates: start: 2009
  12. VITAMIN B [Concomitant]
     Route: 048
  13. VITAMIN D [Concomitant]
     Route: 048
  14. CELEXA [Concomitant]
  15. CLONIDINE [Concomitant]
  16. TRAMADOL [Concomitant]
  17. ZANTAC [Concomitant]
  18. LOPRESSOR [Concomitant]
  19. HYDRODIURIL [Concomitant]
  20. FERROUS SULFATE [Concomitant]
  21. FRUSEMIDE [Concomitant]
     Dosage: 40 MG
  22. KLOR-CON [Concomitant]
     Dosage: 20 MEQ
  23. PROTONIX [Concomitant]
  24. VITAMIN E [Concomitant]
  25. CLARITIN [Concomitant]
  26. TRAZODONE [Concomitant]
     Dosage: 50 MG
     Dates: start: 2009, end: 2012
  27. STOOL SOFTENER [Concomitant]
  28. MULTIVITAMIN [Concomitant]

REACTIONS (3)
  - Lower gastrointestinal haemorrhage [Recovered/Resolved]
  - Anaemia [Unknown]
  - Haemorrhagic stroke [Unknown]
